FAERS Safety Report 10413537 (Version 5)
Quarter: 2015Q2

REPORT INFORMATION
  Report Type: Report from Study
  Country: RU (occurrence: RU)
  Receive Date: 20140827
  Receipt Date: 20150507
  Transmission Date: 20150821
  Serious: Yes (Other)
  Sender: FDA-Public Use
  Company Number: RU-ROCHE-1414253

PATIENT

DRUGS (2)
  1. METIPRED [Concomitant]
     Active Substance: METHYLPREDNISOLONE
     Indication: PREMEDICATION
     Route: 065
  2. RITUXIMAB [Suspect]
     Active Substance: RITUXIMAB
     Indication: SYSTEMIC LUPUS ERYTHEMATOSUS
     Route: 042

REACTIONS (17)
  - Haemolytic anaemia [Unknown]
  - Influenza like illness [Unknown]
  - Treatment failure [Unknown]
  - Catarrh [Unknown]
  - Cytopenia [Unknown]
  - Thrombocytopenia [Unknown]
  - Respiratory tract infection [Unknown]
  - Infusion related reaction [Unknown]
  - Urticaria [Unknown]
  - Purpura [Unknown]
  - Product use issue [Unknown]
  - Bronchospasm [Unknown]
  - Furuncle [Unknown]
  - Leukopenia [Unknown]
  - Tendonitis [Unknown]
  - Arthritis [Unknown]
  - Urinary tract infection [Unknown]
